FAERS Safety Report 25659427 (Version 1)
Quarter: 2025Q3

REPORT INFORMATION
  Report Type: Spontaneous
  Country: US (occurrence: None)
  Receive Date: 20250807
  Receipt Date: 20250807
  Transmission Date: 20251020
  Serious: Yes (Other)
  Sender: FDA-CTU
  Company Number: None

PATIENT
  Age: 68 Year
  Sex: Male
  Weight: 79.38 kg

DRUGS (1)
  1. SEROSTIM [Suspect]
     Active Substance: SOMATROPIN
     Dosage: FREQUENCY : DAILY;?
     Route: 058
     Dates: start: 20250730, end: 20250807

REACTIONS (5)
  - Fluid retention [None]
  - Swelling of eyelid [None]
  - Therapeutic response decreased [None]
  - Peripheral swelling [None]
  - Urine output decreased [None]

NARRATIVE: CASE EVENT DATE: 20250802
